FAERS Safety Report 4662633-7 (Version None)
Quarter: 2005Q2

REPORT INFORMATION
  Report Type: 
  Country: None (occurrence: None)
  Receive Date: 20050512
  Receipt Date: 20050421
  Transmission Date: 20051028
  Serious: Yes (Death, Hospitalization)
  Sender: FDA-Public Use
  Company Number: EWC050443693

PATIENT
  Age: 74 Year
  Sex: Female

DRUGS (3)
  1. OLANZAPINE [Suspect]
     Indication: BIPOLAR I DISORDER
     Dosage: 5 MG/2 DAY
     Dates: start: 20050314, end: 20040415
  2. COUMADIN [Concomitant]
  3. LANOXIN (DIGOXIN-SANDOZ) [Concomitant]

REACTIONS (5)
  - CARDIAC ARREST [None]
  - DIARRHOEA [None]
  - FAECES DISCOLOURED [None]
  - PALLOR [None]
  - VOMITING [None]
